FAERS Safety Report 12790397 (Version 1)
Quarter: 2016Q3

REPORT INFORMATION
  Report Type: Report from Study
  Country: US (occurrence: US)
  Receive Date: 20160928
  Receipt Date: 20160928
  Transmission Date: 20161109
  Serious: Yes (Other)
  Sender: FDA-Public Use
  Company Number: US-ABBVIE-16K-163-1733143-00

PATIENT
  Age: 44 Year
  Sex: Male

DRUGS (1)
  1. HUMIRA [Suspect]
     Active Substance: ADALIMUMAB
     Indication: PSORIASIS
     Route: 058
     Dates: start: 20160624

REACTIONS (5)
  - Increased tendency to bruise [Not Recovered/Not Resolved]
  - Laceration [Unknown]
  - Haemorrhagic diathesis [Not Recovered/Not Resolved]
  - Bleeding time prolonged [Unknown]
  - Blood blister [Unknown]

NARRATIVE: CASE EVENT DATE: 20160801
